FAERS Safety Report 5501299-0 (Version None)
Quarter: 2007Q4

REPORT INFORMATION
  Report Type: 
  Country: None (occurrence: None)
  Receive Date: 20071029
  Receipt Date: 20071017
  Transmission Date: 20080405
  Serious: Yes (Other)
  Sender: FDA-Public Use
  Company Number: US-PFIZER INC-2007089081

PATIENT
  Sex: Female
  Weight: 59 kg

DRUGS (8)
  1. CHANTIX [Suspect]
     Indication: SMOKING CESSATION THERAPY
     Route: 048
     Dates: start: 20070817, end: 20071013
  2. ALPRAZOLAM [Suspect]
     Indication: SLEEP DISORDER
  3. ALPRAZOLAM [Suspect]
     Indication: SEDATION
  4. ALL OTHER THERAPEUTIC PRODUCTS [Concomitant]
     Route: 048
  5. LISINOPRIL [Concomitant]
     Route: 048
  6. LIPITOR [Concomitant]
  7. SYNTHROID [Concomitant]
  8. NEXIUM [Concomitant]

REACTIONS (4)
  - ANGER [None]
  - DEPRESSION [None]
  - RIB FRACTURE [None]
  - SUICIDAL IDEATION [None]
